FAERS Safety Report 7753779-5 (Version None)
Quarter: 2011Q3

REPORT INFORMATION
  Report Type: 
  Country: None (occurrence: None)
  Receive Date: 20110915
  Receipt Date: 20110906
  Transmission Date: 20111222
  Serious: Yes (Hospitalization)
  Sender: FDA-Public Use
  Company Number: JP-AMGEN-JPNCT2011043638

PATIENT
  Age: 73 Year
  Sex: Female
  Weight: 52 kg

DRUGS (4)
  1. ROMAL [Concomitant]
     Indication: OSTEOARTHRITIS
     Dosage: ARBITRARILY,ADEQUATE DOSE
     Route: 061
     Dates: start: 20100302, end: 20110813
  2. DENOSUMAB [Suspect]
     Indication: OSTEOPOROSIS
     Dosage: 60 MG, Q6MO
     Route: 058
     Dates: start: 20110222
  3. ROMAL TAPE20 [Concomitant]
     Indication: OSTEOARTHRITIS
     Dosage: ARBITRARILY,ADEQUATE DOSE
     Route: 061
     Dates: start: 20100302, end: 20110813
  4. CALCICHEW D3 [Concomitant]
     Indication: OSTEOPOROSIS
     Dosage: UNK
     Route: 048
     Dates: end: 20110814

REACTIONS (1)
  - COLITIS ISCHAEMIC [None]
